FAERS Safety Report 10642948 (Version 1)
Quarter: 2014Q4

REPORT INFORMATION
  Report Type: Spontaneous
  Country: US (occurrence: None)
  Receive Date: 20141209
  Receipt Date: 20141209
  Transmission Date: 20150529
  Serious: No
  Sender: FDA-Public Use
  Company Number: None

PATIENT

DRUGS (1)
  1. HEPARIN LOCK FLUSH [Suspect]
     Active Substance: HEPARIN SODIUM
     Dosage: INJECTABLE, 100 UNITS/ML 5 ML SYRINGE

REACTIONS (1)
  - Syringe issue [None]
